FAERS Safety Report 9918103 (Version 2)
Quarter: 2014Q1

REPORT INFORMATION
  Report Type: Spontaneous
  Country: US (occurrence: US)
  Receive Date: 20140223
  Receipt Date: 20140223
  Transmission Date: 20141002
  Serious: No
  Sender: FDA-Public Use
  Company Number: US-ALLERGAN-1317143US

PATIENT
  Age: 32 Year
  Sex: Female

DRUGS (2)
  1. TAZORAC CREAM 0.05% [Suspect]
     Indication: ACNE
     Dosage: UNK, QD
     Route: 061
  2. BIRTH CONTROL NOS [Concomitant]
     Indication: PRODUCT USED FOR UNKNOWN INDICATION

REACTIONS (1)
  - Antinuclear antibody positive [Not Recovered/Not Resolved]
